FAERS Safety Report 4829613-X (Version None)
Quarter: 2005Q4

REPORT INFORMATION
  Report Type: 
  Country: None (occurrence: None)
  Receive Date: 20051027
  Receipt Date: 20041214
  Transmission Date: 20060501
  Serious: Yes (Hospitalization, Other)
  Sender: FDA-Public Use
  Company Number: 200415005US

PATIENT
  Age: 51 Year
  Sex: Male

DRUGS (10)
  1. ARAVA [Suspect]
     Indication: RHEUMATOID ARTHRITIS
     Dosage: 20 MG QD
     Dates: start: 19990101, end: 20000828
  2. METHOTREXATE [Suspect]
     Indication: RHEUMATOID ARTHRITIS
     Dosage: 5 MG 6XW
  3. VOLTAREN [Concomitant]
  4. KEFLEX [Concomitant]
  5. PRAVASTATIN SODIUM (PRAVACHOL) [Concomitant]
  6. IRON [Concomitant]
  7. VITAMIN B6 [Concomitant]
  8. ZANTAC [Concomitant]
  9. CODEINE PHOSPHATE [Concomitant]
  10. PARACETAMOL (TYLENOL W/CODEINE NO. 3) [Concomitant]

REACTIONS (14)
  - ABDOMINAL PAIN [None]
  - ANAEMIA [None]
  - CHILLS [None]
  - DIARRHOEA [None]
  - HYPERTENSION [None]
  - IMPAIRED HEALING [None]
  - LEUKOPENIA [None]
  - LIVER FUNCTION TEST [None]
  - NIGHT SWEATS [None]
  - PANCYTOPENIA [None]
  - PNEUMONIA [None]
  - PYREXIA [None]
  - THROMBOCYTOPENIA [None]
  - WEIGHT DECREASED [None]
